FAERS Safety Report 12101376 (Version 1)
Quarter: 2016Q1

REPORT INFORMATION
  Report Type: Spontaneous
  Country: FR (occurrence: FR)
  Receive Date: 20160222
  Receipt Date: 20160222
  Transmission Date: 20160526
  Serious: Yes (Death)
  Sender: FDA-Public Use
  Company Number: FR-JNJFOC-20160214246

PATIENT
  Age: 86 Year
  Sex: Female

DRUGS (6)
  1. RISPERDAL [Suspect]
     Active Substance: RISPERIDONE
     Indication: AGITATION
     Dosage: AT NOON
     Route: 048
     Dates: start: 20150907, end: 20150912
  2. RISPERDAL [Suspect]
     Active Substance: RISPERIDONE
     Indication: AGITATION
     Dosage: AT NOON.
     Route: 048
     Dates: start: 20150913, end: 20150915
  3. KARDEGIC [Concomitant]
     Active Substance: ASPIRIN LYSINE
     Route: 065
     Dates: start: 20150626, end: 20151011
  4. SERESTA [Suspect]
     Active Substance: OXAZEPAM
     Indication: PRODUCT USED FOR UNKNOWN INDICATION
     Dosage: LAST DOSE AT 10:00 P.M.
     Route: 048
     Dates: start: 20150915, end: 20151011
  5. RISPERDAL [Suspect]
     Active Substance: RISPERIDONE
     Indication: AGITATION
     Dosage: AT 6:00 P.M.
     Route: 048
     Dates: start: 20150916, end: 20151011
  6. ATENOLOL. [Concomitant]
     Active Substance: ATENOLOL
     Route: 048
     Dates: start: 20150626, end: 20151011

REACTIONS (5)
  - Cerebral haematoma [Fatal]
  - Product use issue [Unknown]
  - Cerebrovascular accident [Fatal]
  - Fall [Fatal]
  - Off label use [Unknown]

NARRATIVE: CASE EVENT DATE: 20150907
